FAERS Safety Report 7388156-2 (Version None)
Quarter: 2011Q2

REPORT INFORMATION
  Report Type: 
  Country: None (occurrence: None)
  Receive Date: 20110401
  Receipt Date: 20101108
  Transmission Date: 20111010
  Serious: Yes (Other)
  Sender: FDA-Public Use
  Company Number: US-BAYER-201038080NA

PATIENT
  Sex: Female
  Weight: 67.12 kg

DRUGS (5)
  1. LIPITOR [Concomitant]
     Dosage: UNK
     Dates: start: 20040101
  2. DICLOFENAC [DICLOFENAC] [Concomitant]
     Dosage: UNK
     Dates: start: 20080101
  3. OCELLA [Suspect]
     Indication: ACNE
  4. YAZ [Suspect]
     Indication: CONTRACEPTION
     Dosage: UNK
     Dates: start: 20040101, end: 20080101
  5. YASMIN [Suspect]
     Indication: CONTRACEPTION
     Dosage: UNK
     Dates: start: 20040101, end: 20080101

REACTIONS (5)
  - CHOLECYSTITIS CHRONIC [None]
  - PAIN [None]
  - CHOLELITHIASIS [None]
  - INJURY [None]
  - GALLBLADDER DISORDER [None]
